FAERS Safety Report 8682179 (Version 5)
Quarter: 2012Q4

REPORT INFORMATION
  Report Type: 
  Country: US (occurrence: US)
  Receive Date: 20120725
  Receipt Date: 20120921
  Transmission Date: 20130627
  Serious: Yes (Other)
  Sender: FDA-Public Use
  Company Number: US-PFIZER INC-2012177950

PATIENT
  Age: 74 Year
  Sex: Female
  Weight: 86 kg

DRUGS (6)
  1. CELEBREX [Suspect]
     Indication: ARTHRALGIA
     Dosage: 200 mg, 1x/day
     Route: 048
     Dates: start: 20090806
  2. SIMVASTATIN [Concomitant]
     Indication: BLOOD CHOLESTEROL INCREASED
     Dosage: UNK
  3. METFORMIN [Concomitant]
     Dosage: UNK
  4. AMLODIPINE [Concomitant]
     Dosage: UNK
  5. GABAPENTIN [Concomitant]
     Dosage: UNK
  6. LISINOPRIL [Concomitant]
     Dosage: UNK

REACTIONS (3)
  - Macular degeneration [Unknown]
  - Impaired driving ability [Unknown]
  - Weight decreased [Unknown]
